FAERS Safety Report 21149246 (Version 1)
Quarter: 2022Q3

REPORT INFORMATION
  Report Type: Spontaneous
  Country: US (occurrence: US)
  Receive Date: 20220729
  Receipt Date: 20220729
  Transmission Date: 20221026
  Serious: Yes (Other)
  Sender: FDA-Public Use
  Company Number: US-PFIZER INC-PV202200032326

PATIENT
  Age: 77 Year
  Sex: Female

DRUGS (1)
  1. RAPAMUNE [Suspect]
     Active Substance: SIROLIMUS
     Indication: Iridocyclitis
     Dosage: 2 MG, DAILY
     Route: 048

REACTIONS (2)
  - Blindness [Unknown]
  - Off label use [Unknown]
